FAERS Safety Report 8800860 (Version 2)
Quarter: 2012Q4

REPORT INFORMATION
  Report Type: Report from Study
  Country: BE (occurrence: BE)
  Receive Date: 20120921
  Receipt Date: 20120926
  Transmission Date: 20130627
  Serious: Yes (Death)
  Sender: FDA-Public Use
  Company Number: BE-PFIZER INC-2012230908

PATIENT

DRUGS (1)
  1. CRIZOTINIB [Suspect]

REACTIONS (1)
  - Death [Fatal]
